FAERS Safety Report 13536658 (Version 2)
Quarter: 2017Q2

REPORT INFORMATION
  Report Type: Report from Study
  Country: DE (occurrence: DE)
  Receive Date: 20170511
  Receipt Date: 20170614
  Transmission Date: 20170830
  Serious: Yes (Death)
  Sender: FDA-Public Use
  Company Number: DE-ROCHE-1700522

PATIENT
  Age: 56 Year
  Sex: Female
  Weight: 77.1 kg

DRUGS (12)
  1. BEVACIZUMAB [Suspect]
     Active Substance: BEVACIZUMAB
     Route: 042
     Dates: start: 20151012
  2. ZOPICLON [Concomitant]
     Active Substance: ZOPICLONE
     Dosage: SLEEPING AID
     Route: 048
     Dates: start: 20140919
  3. BEVACIZUMAB [Suspect]
     Active Substance: BEVACIZUMAB
     Route: 042
     Dates: start: 20160126
  4. ONDANSETRON [Concomitant]
     Active Substance: ONDANSETRON
     Indication: NAUSEA
     Route: 048
     Dates: start: 20140919
  5. BEVACIZUMAB [Suspect]
     Active Substance: BEVACIZUMAB
     Indication: BREAST CANCER
     Route: 042
     Dates: start: 20141029
  6. MONO EMOBLEX [Concomitant]
     Indication: THROMBOSIS PROPHYLAXIS
     Route: 058
     Dates: start: 20140919
  7. CANDECOR [Concomitant]
     Indication: HYPERTENSION
     Route: 048
     Dates: start: 20140918
  8. PACLITAXEL. [Concomitant]
     Active Substance: PACLITAXEL
     Dosage: 146-770 MG
     Route: 042
     Dates: start: 20141112
  9. CEFUROXIM [Concomitant]
     Active Substance: CEFUROXIME
     Indication: INFLAMMATION
     Route: 048
     Dates: start: 20140919
  10. PACLITAXEL. [Concomitant]
     Active Substance: PACLITAXEL
     Indication: BREAST CANCER
     Route: 042
     Dates: start: 20141015, end: 20141022
  11. PACLITAXEL. [Concomitant]
     Active Substance: PACLITAXEL
     Route: 042
     Dates: start: 20141029, end: 20141029
  12. VOLTAREN [Concomitant]
     Active Substance: DICLOFENAC SODIUM
     Indication: PAIN
     Route: 048
     Dates: start: 20140919

REACTIONS (2)
  - Radiation skin injury [Recovered/Resolved]
  - Dyspnoea [Fatal]

NARRATIVE: CASE EVENT DATE: 20151012
